FAERS Safety Report 21666314 (Version 1)
Quarter: 2022Q4

REPORT INFORMATION
  Report Type: Spontaneous
  Country: DE (occurrence: DE)
  Receive Date: 20221201
  Receipt Date: 20221201
  Transmission Date: 20230112
  Serious: Yes (Other)
  Sender: FDA-Public Use
  Company Number: None

PATIENT
  Age: 48 Year
  Sex: Male

DRUGS (4)
  1. VENLAFAXINE [Suspect]
     Active Substance: VENLAFAXINE HYDROCHLORIDE
     Indication: Psychotic symptom
     Dosage: 225 MILLIGRAM DAILY; LAST 225 MG/DAY , DURATION : 122 DAYS
     Dates: start: 20220701, end: 20221031
  2. VENLAFAXINE [Suspect]
     Active Substance: VENLAFAXINE HYDROCHLORIDE
     Indication: Depression
  3. OLANZAPINE [Suspect]
     Active Substance: OLANZAPINE
     Indication: Psychotic symptom
     Dosage: 2.5-10 MG/DAY, FINALLY 5 MG/DAY , DURATION : 137 DAYS
     Dates: start: 20220616, end: 20221031
  4. OLANZAPINE [Suspect]
     Active Substance: OLANZAPINE
     Indication: Depression

REACTIONS (2)
  - Pancreatitis acute [Recovering/Resolving]
  - Abdominal pain [Recovering/Resolving]

NARRATIVE: CASE EVENT DATE: 20221031
